FAERS Safety Report 16239101 (Version 1)
Quarter: 2019Q2

REPORT INFORMATION
  Report Type: Spontaneous
  Country: US (occurrence: US)
  Receive Date: 20190424
  Receipt Date: 20190424
  Transmission Date: 20190711
  Serious: Yes (Disabling)
  Sender: FDA-Public Use
  Company Number: None

PATIENT
  Age: 61 Year
  Sex: Male
  Weight: 90 kg

DRUGS (3)
  1. NIACIN. [Concomitant]
     Active Substance: NIACIN
  2. VITAMIN D3 [Concomitant]
     Active Substance: CHOLECALCIFEROL
  3. DUPIXENT [Suspect]
     Active Substance: DUPILUMAB
     Indication: ASTHMA
     Dosage: ?          QUANTITY:1 INJECTION(S);OTHER FREQUENCY:EVERY TWO WEEKS.;?
     Route: 058
     Dates: start: 20190315, end: 20190401

REACTIONS (3)
  - Constipation [None]
  - Dizziness [None]
  - Blood triglycerides increased [None]

NARRATIVE: CASE EVENT DATE: 20190401
